FAERS Safety Report 4315700-1 (Version None)
Quarter: 2004Q1

REPORT INFORMATION
  Report Type: 
  Country: None (occurrence: None)
  Receive Date: 20040310
  Receipt Date: 20040302
  Transmission Date: 20041129
  Serious: Yes (Hospitalization)
  Sender: FDA-Public Use
  Company Number: US-JNJFOC-20040200521

PATIENT
  Age: 63 Year
  Sex: Male
  Weight: 86.637 kg

DRUGS (10)
  1. ULTRACET [Suspect]
     Indication: PAIN
     Dosage: ORAL
     Route: 048
     Dates: end: 20040127
  2. ACIPHEX [Concomitant]
  3. AUGMENTIN [Concomitant]
  4. CIPRO [Concomitant]
  5. FLOMAX [Concomitant]
  6. HYDROCHLOROTHIAZIDE [Concomitant]
  7. MOTRIN [Concomitant]
  8. NASOCORT (BUDESONIDE) [Concomitant]
  9. PROCTOFOAM (PRAMOCAINE HYDROCHLORIDE) [Concomitant]
  10. ZYRTEC [Concomitant]

REACTIONS (5)
  - DIPLOPIA [None]
  - DIZZINESS [None]
  - TREMOR [None]
  - URINARY RETENTION [None]
  - VISION BLURRED [None]
